FAERS Safety Report 5428990-9 (Version None)
Quarter: 2007Q3

REPORT INFORMATION
  Report Type: 
  Country: None (occurrence: None)
  Receive Date: 20070829
  Receipt Date: 20070823
  Transmission Date: 20080115
  Serious: Yes (Other)
  Sender: FDA-Public Use
  Company Number: BR-ASTRAZENECA-2007UW20328

PATIENT
  Age: 56 Year
  Sex: Female
  Weight: 80 kg

DRUGS (1)
  1. BUDECORT AQUA [Suspect]
     Indication: RHINITIS
     Route: 045
     Dates: start: 20040101

REACTIONS (1)
  - DIABETES MELLITUS [None]
